FAERS Safety Report 21720853 (Version 1)
Quarter: 2022Q4

REPORT INFORMATION
  Report Type: Spontaneous
  Country: US (occurrence: US)
  Receive Date: 20221213
  Receipt Date: 20221213
  Transmission Date: 20230112
  Serious: Yes (Hospitalization)
  Sender: FDA-Public Use
  Company Number: US-STRIDES ARCOLAB LIMITED-2022SP011698

PATIENT
  Age: 57 Year
  Sex: Female

DRUGS (20)
  1. DEXAMETHASONE [Suspect]
     Active Substance: DEXAMETHASONE
     Indication: Plasma cell myeloma
     Dosage: UNK; (COMBINATIONS OF TREATMENT WITH LENALIDOMIDE, BORTEZOMIB AND DEXAMETHASONE)
     Route: 065
  2. DEXAMETHASONE [Suspect]
     Active Substance: DEXAMETHASONE
     Dosage: UNK; (COMBINATIONS OF TREATMENT WITH CARFILZOMIB, POMALIDOMIDE AND DEXAMETHASONE)
     Route: 065
  3. DEXAMETHASONE [Suspect]
     Active Substance: DEXAMETHASONE
     Dosage: UNK; (COMBINATIONS OF TREATMENT WITH CYCLOPHOSPHAMIDE, BORTEZOMIB AND DEXAMETHASONE (CYBORD)
     Route: 065
  4. DEXAMETHASONE [Suspect]
     Active Substance: DEXAMETHASONE
     Dosage: UNK; (COMBINATIONS OF SECOND AUTOLOGOUS BONE MARROW TRANSPLANT TREATMENT WITH CARFILZOMIB, LENALIDOM
     Route: 065
  5. DEXAMETHASONE [Suspect]
     Active Substance: DEXAMETHASONE
     Dosage: UNK; (COMBINATIONS OF TREATMENT WITH MELPHALAN FLUFENAMIDE [MELFLUFEN] AND DEXAMETHASONE)
     Route: 065
  6. PREDNISOLONE [Suspect]
     Active Substance: PREDNISOLONE
     Indication: Plasma cell myeloma
     Dosage: UNK; (COMBINATIONS OF TREATMENT WITH POMALIDOMIDE, IXAZOMIB AND PREDNISONE)
     Route: 065
  7. LENALIDOMIDE [Suspect]
     Active Substance: LENALIDOMIDE
     Indication: Plasma cell myeloma
     Dosage: UNK; (COMBINATIONS OF TREATMENT WITH LENALIDOMIDE, BORTEZOMIB AND DEXAMETHASONE)
     Route: 065
  8. LENALIDOMIDE [Suspect]
     Active Substance: LENALIDOMIDE
     Dosage: UNK; (COMBINATIONS OF SECOND AUTOLOGOUS BONE MARROW TRANSPLANT TREATMENT WITH CARFILZOMIB, LENALIDOM
     Route: 065
  9. BORTEZOMIB [Suspect]
     Active Substance: BORTEZOMIB
     Indication: Plasma cell myeloma
     Dosage: UNK; (COMBINATIONS OF TREATMENT WITH LENALIDOMIDE, BORTEZOMIB AND DEXAMETHASONE)
     Route: 065
  10. BORTEZOMIB [Suspect]
     Active Substance: BORTEZOMIB
     Dosage: UNK; (COMBINATIONS OF TREATMENT WITH CYCLOPHOSPHAMIDE, BORTEZOMIB AND DEXAMETHASONE (CYBORD)
     Route: 065
  11. CARFILZOMIB [Suspect]
     Active Substance: CARFILZOMIB
     Indication: Plasma cell myeloma
     Dosage: UNK; (COMBINATIONS OF TREATMENT WITH CARFILZOMIB, POMALIDOMIDE AND DEXAMETHASONE)
     Route: 065
  12. CARFILZOMIB [Suspect]
     Active Substance: CARFILZOMIB
     Dosage: UNK; (COMBINATIONS OF SECOND AUTOLOGOUS BONE MARROW TRANSPLANT TREATMENT WITH CARFILZOMIB, LENALIDOM
     Route: 065
  13. POMALIDOMIDE [Suspect]
     Active Substance: POMALIDOMIDE
     Indication: Plasma cell myeloma
     Dosage: UNK; (COMBINATIONS OF TREATMENT WITH CARFILZOMIB, POMALIDOMIDE AND DEXAMETHASONE)
     Route: 065
  14. POMALIDOMIDE [Suspect]
     Active Substance: POMALIDOMIDE
     Dosage: UNK; (COMBINATIONS OF TREATMENT WITH POMALIDOMIDE, IXAZOMIB AND PREDNISONE)
     Route: 065
  15. POMALIDOMIDE [Suspect]
     Active Substance: POMALIDOMIDE
     Dosage: UNK; (COMBINATIONS OF TREATMENT WITH ISATUXIMAB AND POMALIDOMIDE)
     Route: 065
  16. MELPHALAN [Suspect]
     Active Substance: MELPHALAN
     Indication: Plasma cell myeloma
     Dosage: UNK; (HIGH-DOSE MELPHALAN WITH AUTOLOGOUS BONE MARROW TRANSPLANT)
     Route: 065
  17. IXAZOMIB [Suspect]
     Active Substance: IXAZOMIB
     Indication: Plasma cell myeloma
     Dosage: UNK; (COMBINATIONS OF TREATMENT WITH POMALIDOMIDE, IXAZOMIB AND PREDNISONE)
     Route: 065
  18. CYCLOPHOSPHAMIDE [Suspect]
     Active Substance: CYCLOPHOSPHAMIDE
     Indication: Plasma cell myeloma
     Dosage: UNK; (COMBINATIONS OF TREATMENT WITH CYCLOPHOSPHAMIDE, BORTEZOMIB AND DEXAMETHASONE (CYBORD)
     Route: 065
  19. ISATUXIMAB [Suspect]
     Active Substance: ISATUXIMAB
     Indication: Plasma cell myeloma
     Dosage: UNK; (COMBINATIONS OF TREATMENT WITH ISATUXIMAB AND POMALIDOMIDE)
     Route: 065
  20. MELPHALAN FLUFENAMIDE HYDROCHLORIDE [Suspect]
     Active Substance: MELPHALAN FLUFENAMIDE HYDROCHLORIDE
     Indication: Plasma cell myeloma
     Dosage: UNK; (COMBINATIONS OF TREATMENT WITH MELPHALAN FLUFENAMIDE [MELFLUFEN] AND DEXAMETHASONE)
     Route: 065

REACTIONS (1)
  - Drug ineffective [Unknown]
